FAERS Safety Report 9281263 (Version 1)
Quarter: 2013Q2

REPORT INFORMATION
  Report Type: Spontaneous
  Country: US (occurrence: US)
  Receive Date: 20130509
  Receipt Date: 20130509
  Transmission Date: 20140414
  Serious: Yes (Other)
  Sender: FDA-Public Use
  Company Number: US-PFIZER INC-2013143538

PATIENT
  Age: 48 Year
  Sex: Male
  Weight: 90.7 kg

DRUGS (2)
  1. LYRICA [Suspect]
     Indication: CONVULSION
     Dosage: 150 MG, 2X/DAY
     Route: 048
     Dates: start: 2008, end: 201304
  2. LYRICA [Suspect]
     Indication: NEURALGIA
     Dosage: 100 MG, 2X/DAY
     Route: 048
     Dates: start: 201304

REACTIONS (3)
  - Intentional drug misuse [Unknown]
  - Convulsion [Unknown]
  - Pain [Unknown]
